FAERS Safety Report 6174529-2 (Version None)
Quarter: 2009Q2

REPORT INFORMATION
  Report Type: 
  Country: None (occurrence: None)
  Receive Date: 20090430
  Receipt Date: 20080714
  Transmission Date: 20091009
  Serious: No
  Sender: FDA-Public Use
  Company Number: US-ASTRAZENECA-2008UW14047

PATIENT
  Age: 58 Year
  Sex: Male
  Weight: 102.5 kg

DRUGS (3)
  1. NEXIUM [Suspect]
     Indication: GASTROINTESTINAL DISORDER
     Route: 048
     Dates: start: 20080711
  2. PROZAC [Concomitant]
  3. TRAZODONE HCL [Concomitant]

REACTIONS (3)
  - CHILLS [None]
  - FATIGUE [None]
  - TREMOR [None]
